FAERS Safety Report 4280663-4 (Version None)
Quarter: 2004Q1

REPORT INFORMATION
  Report Type: 
  Country: None (occurrence: None)
  Receive Date: 20040127
  Receipt Date: 20040116
  Transmission Date: 20041129
  Serious: Yes (Hospitalization)
  Sender: FDA-Public Use
  Company Number: FR-JNJFOC-20040103482

PATIENT
  Age: 86 Year
  Sex: Male

DRUGS (14)
  1. VASCOR [Suspect]
     Dosage: ORAL
     Route: 048
     Dates: end: 20030801
  2. PAROXETINE HCL [Suspect]
  3. ISOSORBIDE DINITRATE [Concomitant]
  4. BROMAZEPAM (BROMAZEPAM) [Concomitant]
  5. ALPRAZOLAM [Concomitant]
  6. VINBURNINE (VINBURNINE) [Concomitant]
  7. FINASTERIDE [Concomitant]
  8. NITROGLYCERIN [Concomitant]
  9. TRIMETAZIDINE HYDROCHLORIDE (TRIMETAZIDINE HYDROCHLORIDE) [Concomitant]
  10. BETAHISTINE HYDROCHLORIDE (BETAHISTINE HYDROCHLORIDE) [Concomitant]
  11. ZOLPIDEM TARTRATE [Concomitant]
  12. DIACEREIN (DIACEREIN) [Concomitant]
  13. CIPROFIBRATE (CIPROFIBRATE) [Concomitant]
  14. ACETYLSALICYLIC ACID SRT [Concomitant]

REACTIONS (4)
  - ATAXIA [None]
  - CHOREOATHETOSIS [None]
  - DRUG TOXICITY [None]
  - DYSKINESIA [None]
